FAERS Safety Report 9174541 (Version 1)
Quarter: 2013Q1

REPORT INFORMATION
  Report Type: Spontaneous
  Country: US (occurrence: US)
  Receive Date: 20130320
  Receipt Date: 20130320
  Transmission Date: 20140127
  Serious: No
  Sender: FDA-Public Use
  Company Number: US-MYLANLABS-2012S1019785

PATIENT
  Sex: Female

DRUGS (3)
  1. ESTRADIOL TRANSDERMAL SYSTEM, USP [Suspect]
     Indication: HORMONE REPLACEMENT THERAPY
     Dosage: QWEEK
     Route: 062
  2. SYNTHROID [Concomitant]
     Indication: HYPOTHYROIDISM
  3. HCTZ [Concomitant]
     Indication: FLUID RETENTION

REACTIONS (1)
  - Hair growth abnormal [Not Recovered/Not Resolved]
